FAERS Safety Report 11509877 (Version 1)
Quarter: 2015Q3

REPORT INFORMATION
  Report Type: Spontaneous
  Country: US (occurrence: US)
  Receive Date: 20150915
  Receipt Date: 20150915
  Transmission Date: 20151125
  Serious: No
  Sender: FDA-Public Use
  Company Number: US-JNJFOC-20150406839

PATIENT
  Age: 62 Year
  Sex: Female
  Weight: 41.28 kg

DRUGS (1)
  1. MOTRIN IB [Suspect]
     Active Substance: IBUPROFEN
     Indication: PAIN
     Dosage: TWICE WITHIN AN HOUR
     Route: 048
     Dates: start: 20150407, end: 20150407

REACTIONS (1)
  - Extra dose administered [Unknown]
